FAERS Safety Report 19663014 (Version 1)
Quarter: 2021Q3

REPORT INFORMATION
  Report Type: Spontaneous
  Country: US (occurrence: US)
  Receive Date: 20210805
  Receipt Date: 20210805
  Transmission Date: 20211014
  Serious: Yes (Hospitalization, Other)
  Sender: FDA-Public Use
  Company Number: US-GILEAD-2021-0543200

PATIENT
  Sex: Male

DRUGS (15)
  1. PANTOPRAZOLE SODIUM. [Concomitant]
     Active Substance: PANTOPRAZOLE SODIUM
  2. FUROSEMIDE. [Concomitant]
     Active Substance: FUROSEMIDE
  3. FEROSUL [Concomitant]
     Active Substance: FERROUS SULFATE
  4. VITAMIN B?1 [Concomitant]
     Active Substance: THIAMINE HYDROCHLORIDE
  5. MAGNESIUM OXIDE. [Concomitant]
     Active Substance: MAGNESIUM OXIDE
  6. TAB A VITE [Concomitant]
  7. SPIRONOLACTONE. [Concomitant]
     Active Substance: SPIRONOLACTONE
  8. CARVEDILOL. [Concomitant]
     Active Substance: CARVEDILOL
  9. ADVAIR HFA [Concomitant]
     Active Substance: FLUTICASONE PROPIONATE\SALMETEROL XINAFOATE
  10. FOLIC ACID. [Concomitant]
     Active Substance: FOLIC ACID
  11. ATORVASTATIN CALCIUM. [Concomitant]
     Active Substance: ATORVASTATIN CALCIUM
  12. ACAMPROSATE CALCIUM. [Concomitant]
     Active Substance: ACAMPROSATE CALCIUM
  13. GABAPENTIN. [Concomitant]
     Active Substance: GABAPENTIN
  14. EPCLUSA [Suspect]
     Active Substance: SOFOSBUVIR\VELPATASVIR
     Indication: CHRONIC HEPATITIS C
     Dosage: 1 DOSAGE FORM, QD
     Route: 048
  15. LACTULOSE. [Concomitant]
     Active Substance: LACTULOSE

REACTIONS (1)
  - Gastric infection [Unknown]
